FAERS Safety Report 6249654-8 (Version None)
Quarter: 2009Q2

REPORT INFORMATION
  Report Type: 
  Country: None (occurrence: None)
  Receive Date: 20090629
  Receipt Date: 20090617
  Transmission Date: 20091009
  Serious: Yes (Hospitalization)
  Sender: FDA-Public Use
  Company Number: US-PFIZER INC-2009189289

PATIENT
  Sex: Female
  Weight: 53.061 kg

DRUGS (30)
  1. NAPROXEN [Suspect]
     Dosage: UNK
     Route: 048
     Dates: start: 20080124
  2. BLINDED *NO SUBJECT DRUG [Suspect]
     Dosage: UNK
     Route: 048
     Dates: start: 20080124
  3. BLINDED *PLACEBO [Suspect]
     Dosage: UNK
     Route: 048
     Dates: start: 20080124
  4. BLINDED CELECOXIB [Suspect]
     Dosage: UNK
     Route: 048
     Dates: start: 20080124
  5. IBUPROFEN [Suspect]
     Dosage: UNK
     Route: 048
     Dates: start: 20080124
  6. NAPROXEN [Suspect]
     Dosage: UNK
     Route: 048
     Dates: start: 20080124
  7. NEXIUM [Concomitant]
     Dosage: 20 MG, 1X/DAY
     Dates: start: 20080124
  8. COZAAR [Concomitant]
     Dosage: UNK
     Dates: start: 20060701
  9. CRESTOR [Concomitant]
     Dosage: UNK
     Dates: start: 20060720
  10. MONTELUKAST SODIUM [Concomitant]
     Dosage: UNK
     Dates: start: 20060221
  11. VITAMIN E [Concomitant]
     Dosage: UNK
     Dates: start: 20040101
  12. ZOMIG [Concomitant]
     Dosage: UNK
     Dates: start: 20040101
  13. IMITREX [Concomitant]
     Dosage: UNK
     Dates: start: 20040101
  14. COMBIVENT [Concomitant]
     Dosage: UNK
     Dates: start: 20040101
  15. VERAPAMIL [Concomitant]
     Dosage: UNK
     Dates: start: 20061017
  16. FIORICET [Concomitant]
     Dosage: UNK
     Dates: start: 20030101
  17. FOLIC ACID [Concomitant]
     Dosage: UNK
     Dates: start: 20040101
  18. GENERAL NUTRIENTS [Concomitant]
     Dosage: UNK
     Dates: start: 20040101
  19. OMEGA 3/VITAMIN E [Concomitant]
     Dosage: UNK
     Dates: start: 20040101
  20. TYLENOL (CAPLET) [Concomitant]
     Dosage: UNK
     Dates: start: 19900101
  21. AMBIEN [Concomitant]
     Dosage: UNK
     Dates: start: 20061101
  22. SODIUM CHLORIDE [Concomitant]
     Dosage: UNK
     Dates: start: 20070115
  23. SPORANOX [Concomitant]
     Dosage: UNK
     Dates: start: 20061201
  24. CHONDROITIN/GLUCOSAMINE [Concomitant]
     Dosage: UNK
     Dates: start: 20061101
  25. HERBAL NOS/MINERALS NOS [Concomitant]
     Dosage: UNK
     Dates: start: 20070205
  26. MIRAPEX [Concomitant]
     Dosage: UNK
     Dates: start: 20070625
  27. ORLISTAT [Concomitant]
     Dosage: UNK
     Dates: start: 20070621
  28. ADVAIR DISKUS 100/50 [Concomitant]
     Dosage: UNK
     Dates: start: 20071002
  29. TYLENOL (CAPLET) [Concomitant]
     Dosage: UNK
     Dates: start: 20050101
  30. ULTRAM ER [Concomitant]
     Dosage: UNK
     Dates: start: 20070104

REACTIONS (2)
  - MIGRAINE [None]
  - PNEUMONITIS [None]
